FAERS Safety Report 6697512-7 (Version None)
Quarter: 2010Q2

REPORT INFORMATION
  Report Type: 
  Country: None (occurrence: None)
  Receive Date: 20100426
  Receipt Date: 20100414
  Transmission Date: 20101027
  Serious: Yes (Other)
  Sender: FDA-Public Use
  Company Number: US-PFIZER INC-2010047884

PATIENT
  Sex: Female

DRUGS (2)
  1. XALATAN [Suspect]
  2. XALEASE [Suspect]

REACTIONS (2)
  - ACCIDENTAL OVERDOSE [None]
  - CATARACT [None]
